FAERS Safety Report 7527109-8 (Version None)
Quarter: 2011Q2

REPORT INFORMATION
  Report Type: 
  Country: None (occurrence: None)
  Receive Date: 20110607
  Receipt Date: 20110524
  Transmission Date: 20111010
  Serious: Yes (Other)
  Sender: FDA-Public Use
  Company Number: US-MYLANLABS-2011S1011012

PATIENT
  Age: 3 Day
  Sex: Male

DRUGS (2)
  1. LAMOTRIGINE [Suspect]
     Indication: BIPOLAR DISORDER
     Dosage: 25MG DAILY FOR 2 WEEKS
     Route: 064
  2. LAMOTRIGINE [Suspect]
     Dosage: 50MG DAILY UNTIL DELIVERY
     Route: 064

REACTIONS (2)
  - OXYGEN SATURATION DECREASED [None]
  - DRUG EXPOSURE DURING PREGNANCY [None]
